FAERS Safety Report 15437830 (Version 2)
Quarter: 2018Q4

REPORT INFORMATION
  Report Type: Spontaneous
  Country: US (occurrence: US)
  Receive Date: 20180927
  Receipt Date: 20181016
  Transmission Date: 20190204
  Serious: No
  Sender: FDA-Public Use
  Company Number: US-ALEXION PHARMACEUTICALS INC.-A201812618

PATIENT
  Age: 6 Year
  Sex: Male
  Weight: 34.7 kg

DRUGS (4)
  1. ALBUTEROL SULFATE. [Concomitant]
     Active Substance: ALBUTEROL SULFATE
     Indication: PRODUCT USED FOR UNKNOWN INDICATION
     Dosage: UNK
     Route: 065
     Dates: start: 20161222
  2. STRENSIQ [Suspect]
     Active Substance: ASFOTASE ALFA
     Dosage: 60 MG, TIW
     Route: 058
     Dates: start: 20180205, end: 20180912
  3. ZYRTEC [Concomitant]
     Active Substance: CETIRIZINE HYDROCHLORIDE
     Indication: SEASONAL ALLERGY
     Dosage: UNK
     Route: 065
  4. STRENSIQ [Suspect]
     Active Substance: ASFOTASE ALFA
     Indication: HYPOPHOSPHATASIA
     Dosage: 2 MG/KG, TIW
     Route: 058
     Dates: start: 20170219, end: 20180205

REACTIONS (19)
  - Arthralgia [Unknown]
  - Pain in extremity [Unknown]
  - Injection site bruising [Recovered/Resolved]
  - Injection site erythema [Recovered/Resolved]
  - Psychomotor hyperactivity [Unknown]
  - Snoring [Unknown]
  - Upper respiratory tract infection [Recovered/Resolved]
  - Gait disturbance [Recovered/Resolved]
  - Hypermetropia [Unknown]
  - Injection site swelling [Unknown]
  - Vitamin D decreased [Unknown]
  - Hepatic steatosis [Unknown]
  - Nasal congestion [Unknown]
  - Blood alkaline phosphatase increased [Unknown]
  - Injection site atrophy [Unknown]
  - Transaminases increased [Not Recovered/Not Resolved]
  - Weight increased [Unknown]
  - Fatigue [Recovered/Resolved]
  - Blood phosphorus increased [Unknown]

NARRATIVE: CASE EVENT DATE: 2017
